FAERS Safety Report 17106291 (Version 3)
Quarter: 2019Q4

REPORT INFORMATION
  Report Type: Spontaneous
  Country: DZ (occurrence: DZ)
  Receive Date: 20191203
  Receipt Date: 20191231
  Transmission Date: 20200122
  Serious: Yes (Hospitalization, Other)
  Sender: FDA-Public Use
  Company Number: DZ-SA-2019SA332016

PATIENT
  Sex: Female
  Weight: 68 kg

DRUGS (2)
  1. TAXOTERE [Suspect]
     Active Substance: DOCETAXEL
     Indication: BREAST CANCER FEMALE
     Dosage: UNK UNK, UNK
     Route: 065
     Dates: start: 20191111
  2. TAXOTERE [Suspect]
     Active Substance: DOCETAXEL
     Dosage: 25% REDUCTION IN DOSE
     Route: 065

REACTIONS (2)
  - Skin toxicity [Recovered/Resolved]
  - Neutropenia [Recovered/Resolved]

NARRATIVE: CASE EVENT DATE: 20191118
